FAERS Safety Report 11331182 (Version 1)
Quarter: 2015Q3

REPORT INFORMATION
  Report Type: Spontaneous
  Country: US (occurrence: None)
  Receive Date: 20150730
  Receipt Date: 20150730
  Transmission Date: 20151125
  Serious: Yes (Hospitalization, Disabling)
  Sender: FDA-Public Use
  Company Number: None

PATIENT
  Age: 83 Year
  Sex: Female
  Weight: 58.06 kg

DRUGS (8)
  1. LISINOPRIL. [Concomitant]
     Active Substance: LISINOPRIL
  2. COUMADIN [Concomitant]
     Active Substance: WARFARIN SODIUM
  3. DONEPEZIL. [Concomitant]
     Active Substance: DONEPEZIL
  4. LIORESAL [Suspect]
     Active Substance: BACLOFEN
     Indication: MUSCLE SPASMS
     Route: 048
     Dates: start: 20150603, end: 20150604
  5. VENLAFLEXIN [Concomitant]
  6. OXYCODONE [Concomitant]
     Active Substance: OXYCODONE
  7. CARVEDILOL. [Concomitant]
     Active Substance: CARVEDILOL
  8. METFORMIN [Concomitant]
     Active Substance: METFORMIN HYDROCHLORIDE

REACTIONS (3)
  - Muscle spasms [None]
  - Hallucination [None]
  - Delirium [None]

NARRATIVE: CASE EVENT DATE: 20150604
